FAERS Safety Report 9047889 (Version 2)
Quarter: 2013Q2

REPORT INFORMATION
  Report Type: Spontaneous
  Country: US (occurrence: US)
  Receive Date: 20130204
  Receipt Date: 20130404
  Transmission Date: 20140414
  Serious: Yes (Other)
  Sender: FDA-Public Use
  Company Number: US-AMGEN-USASP2013004988

PATIENT
  Age: 58 Year
  Sex: Female
  Weight: 92.97 kg

DRUGS (7)
  1. ATIVAN [Concomitant]
     Indication: INSOMNIA
  2. ENBREL [Suspect]
     Indication: PSORIASIS
     Dosage: 50 MG, QWK
     Dates: start: 20070128, end: 20130115
  3. LEVOTHYROXINE [Concomitant]
     Indication: HYPOTHYROIDISM
     Dosage: 75 MUG, QD
     Route: 048
  4. CELEXA                             /00582602/ [Concomitant]
     Indication: DEPRESSION
     Dosage: 20 MG, QD
     Route: 048
  5. VICODIN [Concomitant]
     Indication: BACK PAIN
     Dosage: 5-500, PRN PAIN
     Route: 048
  6. VICODIN [Concomitant]
     Indication: MUSCULOSKELETAL PAIN
  7. ATIVAN [Concomitant]
     Indication: ANXIETY
     Dosage: 1 MG, PRN
     Route: 048

REACTIONS (1)
  - Multiple sclerosis [Not Recovered/Not Resolved]
